FAERS Safety Report 13294417 (Version 1)
Quarter: 2017Q1

REPORT INFORMATION
  Report Type: Spontaneous
  Country: US (occurrence: US)
  Receive Date: 20170303
  Receipt Date: 20170303
  Transmission Date: 20170428
  Serious: No
  Sender: FDA-Public Use
  Company Number: US-PFIZER INC-2017094526

PATIENT
  Sex: Female

DRUGS (1)
  1. LYRICA [Suspect]
     Active Substance: PREGABALIN
     Dosage: UNK

REACTIONS (7)
  - Influenza like illness [Unknown]
  - Hypersensitivity [Unknown]
  - Lip swelling [Unknown]
  - Malaise [Unknown]
  - Rash generalised [Unknown]
  - Hypokinesia [Unknown]
  - Swollen tongue [Unknown]
